FAERS Safety Report 6650098-5 (Version None)
Quarter: 2010Q1

REPORT INFORMATION
  Report Type: 
  Country: None (occurrence: None)
  Receive Date: 20100325
  Receipt Date: 20090302
  Transmission Date: 20100710
  Serious: No
  Sender: FDA-Public Use
  Company Number: US-KINGPHARMUSA00001-K200900209

PATIENT
  Sex: Male

DRUGS (9)
  1. ALTACE [Suspect]
     Dosage: UNK
  2. PROTONIX                           /01263201/ [Suspect]
     Dosage: 40 MG, UNK
  3. FLOMAX [Suspect]
     Dosage: 0.4 MG, UNK
  4. NAMENDA [Suspect]
     Dosage: 10 MG, UNK
  5. LIPITROL [Suspect]
     Dosage: 40 MG, UNK
  6. NORVASC [Suspect]
     Dosage: 10 MG, UNK
  7. TOPROL-XL [Suspect]
     Dosage: 25 MG, UNK
  8. ASPIRIN [Suspect]
     Dosage: 81 MG, UNK
  9. XALATAN [Suspect]

REACTIONS (3)
  - DECREASED APPETITE [None]
  - NAUSEA [None]
  - WEIGHT DECREASED [None]
